FAERS Safety Report 9748181 (Version 2)
Quarter: 2013Q4

REPORT INFORMATION
  Report Type: Spontaneous
  Country: US (occurrence: US)
  Receive Date: 20131212
  Receipt Date: 20131219
  Transmission Date: 20140711
  Serious: No
  Sender: FDA-Public Use
  Company Number: US-PFIZER INC-2013351220

PATIENT
  Age: 79 Year
  Sex: Female

DRUGS (4)
  1. ADVIL [Suspect]
     Indication: BACK PAIN
     Dosage: 200 MG, ONCE
     Dates: start: 201312, end: 201312
  2. ADVIL [Suspect]
     Indication: BACK DISORDER
  3. PEPTO-BISMOL [Suspect]
     Indication: DIARRHOEA
     Dosage: UNK, AS NEEDED
     Dates: start: 201312
  4. GLIPIZIDE [Concomitant]
     Indication: DIABETES MELLITUS
     Dosage: UNK, 2X/DAY

REACTIONS (4)
  - Diarrhoea [Unknown]
  - Malaise [Unknown]
  - Drug ineffective [Unknown]
  - Product quality issue [Unknown]
